FAERS Safety Report 20074663 (Version 1)
Quarter: 2021Q4

REPORT INFORMATION
  Report Type: Spontaneous
  Country: US (occurrence: None)
  Receive Date: 20211115
  Receipt Date: 20211115
  Transmission Date: 20220303
  Serious: No
  Sender: FDA-Public Use
  Company Number: None

PATIENT
  Age: 71 Year
  Sex: Male
  Weight: 80.74 kg

DRUGS (12)
  1. MYLERAN [Suspect]
     Active Substance: BUSULFAN
     Indication: Essential thrombocythaemia
     Dosage: FREQUENCY : DAILY;?
     Route: 048
     Dates: start: 20210420, end: 20211115
  2. AMLODIPINE BESYLATE [Concomitant]
     Active Substance: AMLODIPINE BESYLATE
  3. ASCORBIC ACID [Concomitant]
     Active Substance: ASCORBIC ACID
  4. ASPIRIN [Concomitant]
     Active Substance: ASPIRIN
  5. CETIRIZINE [Concomitant]
     Active Substance: CETIRIZINE HYDROCHLORIDE
  6. FLONASE [Concomitant]
     Active Substance: FLUTICASONE PROPIONATE
  7. glyBURIDE-metFORMIN [Concomitant]
  8. HYDROXYUREA [Concomitant]
     Active Substance: HYDROXYUREA
  9. LOSARTAN POTASSIUM [Concomitant]
     Active Substance: LOSARTAN POTASSIUM
  10. VITAMINS [Concomitant]
     Active Substance: VITAMINS
  11. OMEGA-3 FATTY ACIDS [Concomitant]
     Active Substance: OMEGA-3 FATTY ACIDS
  12. TYLENOL [Concomitant]
     Active Substance: ACETAMINOPHEN

REACTIONS (1)
  - Anaemia [None]

NARRATIVE: CASE EVENT DATE: 20211115
